FAERS Safety Report 7771455-X (Version None)
Quarter: 2011Q3

REPORT INFORMATION
  Report Type: 
  Country: None (occurrence: None)
  Receive Date: 20110922
  Receipt Date: 20110614
  Transmission Date: 20111222
  Serious: No
  Sender: FDA-Public Use
  Company Number: US-ASTRAZENECA-2011SE36412

PATIENT
  Age: 57 Year
  Sex: Female

DRUGS (2)
  1. SEROQUEL XR [Suspect]
     Indication: SLEEP DISORDER
     Route: 048
  2. SEROQUEL XR [Suspect]
     Dosage: 300 MG HALF TABLET
     Route: 048

REACTIONS (7)
  - WITHDRAWAL SYNDROME [None]
  - ANXIETY [None]
  - FEELING ABNORMAL [None]
  - NERVOUSNESS [None]
  - WRONG TECHNIQUE IN DRUG USAGE PROCESS [None]
  - INSOMNIA [None]
  - DRUG DOSE OMISSION [None]
